FAERS Safety Report 19027154 (Version 1)
Quarter: 2021Q1

REPORT INFORMATION
  Report Type: Spontaneous
  Country: TR (occurrence: TR)
  Receive Date: 20210318
  Receipt Date: 20210318
  Transmission Date: 20210420
  Serious: Yes (Hospitalization, Other)
  Sender: FDA-Public Use
  Company Number: TR-GLAXOSMITHKLINE-PK2020APC148951

PATIENT
  Age: 44 Year
  Sex: Male

DRUGS (3)
  1. GABAPENTIN. [Concomitant]
     Active Substance: GABAPENTIN
     Indication: GUILLAIN-BARRE SYNDROME
     Dosage: 600 MG, TID
  2. AMLODIPINE [Concomitant]
     Active Substance: AMLODIPINE BESYLATE
     Indication: HYPERTENSION
     Dosage: 5 MG, 1D
  3. DICLOFENAC SODIUM. [Suspect]
     Active Substance: DICLOFENAC SODIUM
     Indication: GUILLAIN-BARRE SYNDROME
     Dosage: 50 MG, BID

REACTIONS (15)
  - Tubulointerstitial nephritis [Recovered/Resolved]
  - Breath sounds abnormal [Recovered/Resolved]
  - Prescription drug used without a prescription [Recovered/Resolved]
  - Renal injury [Recovered/Resolved]
  - Dyspnoea [Recovered/Resolved]
  - General physical health deterioration [Recovered/Resolved]
  - Renal impairment [Recovered/Resolved]
  - Oliguria [Recovered/Resolved]
  - Pruritus [Recovered/Resolved]
  - Peripheral swelling [Recovered/Resolved]
  - Abdominal distension [Recovered/Resolved]
  - Oedema peripheral [Recovered/Resolved]
  - Urine output decreased [Recovered/Resolved]
  - Metabolic acidosis [Recovered/Resolved]
  - Kidney fibrosis [Recovered/Resolved]
